FAERS Safety Report 5006221-1 (Version None)
Quarter: 2006Q1

REPORT INFORMATION
  Report Type: 
  Country: None (occurrence: None)
  Receive Date: 20060327
  Receipt Date: 20060203
  Transmission Date: 20060701
  Serious: No
  Sender: FDA-Public Use
  Company Number: 221791

PATIENT
  Sex: Female

DRUGS (1)
  1. AVASTIN [Suspect]

REACTIONS (1)
  - EXTRAVASATION [None]
